FAERS Safety Report 19481052 (Version 2)
Quarter: 2021Q3

REPORT INFORMATION
  Report Type: Spontaneous
  Country: CZ (occurrence: CZ)
  Receive Date: 20210701
  Receipt Date: 20210708
  Transmission Date: 20211014
  Serious: Yes (Hospitalization)
  Sender: FDA-Public Use
  Company Number: CZ-TEVA-2021-CZ-1927261

PATIENT
  Age: 13 Year
  Sex: Male

DRUGS (11)
  1. OTOBACID [Concomitant]
     Indication: ACUTE SINUSITIS
     Route: 050
  2. NASIVIN [Concomitant]
     Active Substance: OXYMETAZOLINE
     Indication: PRODUCT USED FOR UNKNOWN INDICATION
     Route: 065
  3. ACYCLOVIR. [Concomitant]
     Active Substance: ACYCLOVIR
     Indication: EVIDENCE BASED TREATMENT
     Route: 065
  4. OTOBACID [Concomitant]
     Indication: OTITIS MEDIA
  5. MOMETASONE [Concomitant]
     Active Substance: MOMETASONE
     Indication: ACUTE SINUSITIS
     Route: 065
  6. CEFTRIAXONE. [Suspect]
     Active Substance: CEFTRIAXONE
     Indication: MENINGITIS BORRELIA
     Dosage: 50 MG/KG DAILY;
     Route: 042
  7. AMOXICLAV [Concomitant]
     Active Substance: AMOXICILLIN\CLAVULANATE POTASSIUM
     Indication: ACUTE SINUSITIS
     Dosage: 1875 MILLIGRAM DAILY;
     Route: 065
  8. AMOXICLAV [Concomitant]
     Active Substance: AMOXICILLIN\CLAVULANATE POTASSIUM
     Indication: OTITIS MEDIA
  9. MOMETASONE [Concomitant]
     Active Substance: MOMETASONE
     Indication: OTITIS MEDIA
  10. PHENOXYMETHYLPENICILLIN [Suspect]
     Active Substance: PENICILLIN V
     Indication: STREPTOCOCCAL INFECTION
     Dosage: 75000 IU/KG DAILY;
     Route: 065
  11. CEZERA [Concomitant]
     Indication: PRODUCT USED FOR UNKNOWN INDICATION
     Route: 065

REACTIONS (2)
  - Drug ineffective [Unknown]
  - Cholelithiasis [Recovered/Resolved]
